FAERS Safety Report 9420257 (Version 2)
Quarter: 2013Q4

REPORT INFORMATION
  Report Type: Spontaneous
  Country: US (occurrence: US)
  Receive Date: 20130725
  Receipt Date: 20131111
  Transmission Date: 20140711
  Serious: No
  Sender: FDA-Public Use
  Company Number: US-PFIZER INC-2013217258

PATIENT
  Age: 34 Year
  Sex: Female

DRUGS (4)
  1. PRISTIQ [Suspect]
     Dosage: 1/2 OF A 50MG TABLET, UNK
  2. PRISTIQ [Suspect]
     Dosage: 50 MG, UNK
  3. PRISTIQ [Suspect]
     Dosage: 100 MG, UNK
  4. PRISTIQ [Suspect]
     Dosage: 50 MG, UNK

REACTIONS (6)
  - Wrong technique in drug usage process [Unknown]
  - Agitation [Unknown]
  - Withdrawal syndrome [Unknown]
  - Nausea [Unknown]
  - Fatigue [Unknown]
  - Drug ineffective [Unknown]
